FAERS Safety Report 8575901-3 (Version None)
Quarter: 2012Q3

REPORT INFORMATION
  Report Type: 
  Country: None (occurrence: None)
  Receive Date: 20120807
  Receipt Date: 20120103
  Transmission Date: 20120928
  Serious: Yes (Death, Hospitalization, Other)
  Sender: FDA-Public Use
  Company Number: DE-CELGENEUS-062-50794-12053578

PATIENT
  Age: 65 Year
  Sex: Male
  Weight: 92 kg

DRUGS (5)
  1. VIDAZA [Suspect]
     Route: 058
     Dates: end: 20111010
  2. VIDAZA [Suspect]
     Route: 058
     Dates: start: 20100929
  3. VIDAZA [Suspect]
     Route: 058
     Dates: start: 20110214, end: 20110228
  4. VIDAZA [Suspect]
     Route: 058
     Dates: start: 20110404, end: 20110411
  5. VIDAZA [Suspect]
     Route: 058
     Dates: start: 20110815, end: 20110825

REACTIONS (14)
  - SEPSIS [None]
  - THROMBOCYTOPENIA [None]
  - GENERAL PHYSICAL HEALTH DETERIORATION [None]
  - DECREASED APPETITE [None]
  - GRANULOCYTOPENIA [None]
  - ASTHENIA [None]
  - DISEASE PROGRESSION [None]
  - FATIGUE [None]
  - PNEUMONIA [None]
  - LEUKOPENIA [None]
  - ANAEMIA [None]
  - HYPERSENSITIVITY [None]
  - DEPRESSION [None]
  - INFECTION [None]
